FAERS Safety Report 12797781 (Version 1)
Quarter: 2016Q3

REPORT INFORMATION
  Report Type: Spontaneous
  Country: TW (occurrence: TW)
  Receive Date: 20160930
  Receipt Date: 20160930
  Transmission Date: 20161109
  Serious: Yes (Hospitalization, Other)
  Sender: FDA-Public Use
  Company Number: TW-ORION CORPORATION ORION PHARMA-TREX2016-0002

PATIENT
  Age: 34 Year
  Sex: Male

DRUGS (6)
  1. AMLODIPINE /BENAZEPRIL [Concomitant]
     Indication: HYPERTENSION
     Route: 065
  2. FOLATE [Concomitant]
     Active Substance: FOLATE SODIUM
     Route: 065
  3. CELECOXIB. [Interacting]
     Active Substance: CELECOXIB
     Indication: ARTHRALGIA
     Route: 065
  4. METHOTREXATE. [Suspect]
     Active Substance: METHOTREXATE
     Indication: ERYTHRODERMIC PSORIASIS
     Route: 065
  5. BISOPROLOL [Concomitant]
     Active Substance: BISOPROLOL
     Indication: HYPERTENSION
     Route: 065
  6. VITAMIN D3 [Concomitant]
     Active Substance: CHOLECALCIFEROL
     Route: 065

REACTIONS (3)
  - Toxicity to various agents [Recovered/Resolved]
  - Drug interaction [Recovered/Resolved]
  - Psoriasis [Recovered/Resolved]
